FAERS Safety Report 25402575 (Version 2)
Quarter: 2025Q3

REPORT INFORMATION
  Report Type: Spontaneous
  Country: AR (occurrence: AR)
  Receive Date: 20250605
  Receipt Date: 20250710
  Transmission Date: 20251020
  Serious: Yes (Other)
  Sender: SANDOZ
  Company Number: AR-002147023-NVSC2025AR088526

PATIENT
  Age: 32 Year
  Sex: Female
  Weight: 50 kg

DRUGS (6)
  1. KISQALI [Suspect]
     Active Substance: RIBOCICLIB SUCCINATE
     Dosage: 3 DOSAGE FORM, QD
     Route: 065
  2. KISQALI [Suspect]
     Active Substance: RIBOCICLIB SUCCINATE
     Indication: Breast cancer metastatic
     Dosage: 600 MG, QD( (3 OF 200 MG) (60 TABLETS) (21 DAYS)
     Route: 048
     Dates: start: 20240924
  3. LETROZOLE [Suspect]
     Active Substance: LETROZOLE
     Dosage: 1 DOSAGE FORM, QD
     Route: 065
  4. LETROZOLE [Suspect]
     Active Substance: LETROZOLE
     Indication: Breast cancer metastatic
     Dosage: 2.5 MG, QD (30 TABLETS) (30 DAYS)
     Route: 048
     Dates: start: 20240924
  5. LEUPROLIDE ACETATE [Suspect]
     Active Substance: LEUPROLIDE ACETATE
     Indication: Breast cancer metastatic
     Dosage: UNK UNK, QD (AMPULE)
     Route: 030
     Dates: start: 20240924, end: 202503
  6. ZOLEDRONIC ACID [Suspect]
     Active Substance: ZOLEDRONIC ACID
     Indication: Product used for unknown indication
     Route: 065

REACTIONS (14)
  - Necrosis [Unknown]
  - Hypersensitivity [Unknown]
  - Burning sensation [Unknown]
  - Bone lesion [Unknown]
  - Pruritus [Unknown]
  - Pleural effusion [Unknown]
  - Pain [Unknown]
  - Crying [Unknown]
  - Road traffic accident [Unknown]
  - Neck pain [Unknown]
  - Sleep disorder [Unknown]
  - Alopecia [Recovering/Resolving]
  - Vomiting [Unknown]
  - Nausea [Unknown]

NARRATIVE: CASE EVENT DATE: 20250301
